FAERS Safety Report 10077389 (Version 2)
Quarter: 2014Q2

REPORT INFORMATION
  Report Type: Spontaneous
  Country: US (occurrence: US)
  Receive Date: 20140414
  Receipt Date: 20140414
  Transmission Date: 20141212
  Serious: No
  Sender: FDA-Public Use
  Company Number: US-BANPHARM-20131455

PATIENT
  Age: 75 Year
  Sex: Male
  Weight: 77.11 kg

DRUGS (1)
  1. ALEVE LIQUID GELS 220 MG [Suspect]
     Indication: BACK PAIN
     Dosage: 2 DF, ONCE DAILY,
     Route: 048
     Dates: start: 201306, end: 201306

REACTIONS (2)
  - Therapeutic response changed [Unknown]
  - Drug ineffective [Unknown]
